FAERS Safety Report 9562155 (Version 1)
Quarter: 2013Q3

REPORT INFORMATION
  Report Type: Spontaneous
  Country: US (occurrence: US)
  Receive Date: 20130927
  Receipt Date: 20130927
  Transmission Date: 20140515
  Serious: Yes (Other)
  Sender: FDA-Public Use
  Company Number: US-PFIZER INC-2013277370

PATIENT
  Age: 59 Year
  Sex: Female
  Weight: 70.3 kg

DRUGS (2)
  1. ATORVASTATIN CALCIUM [Suspect]
     Dosage: 10 MG, DAILY
     Route: 048
  2. INSULIN [Concomitant]
     Indication: DIABETES MELLITUS
     Dosage: UNK, 4X/DAY

REACTIONS (1)
  - Cataract [Unknown]
